FAERS Safety Report 5512446-9 (Version None)
Quarter: 2007Q4

REPORT INFORMATION
  Report Type: 
  Country: None (occurrence: None)
  Receive Date: 20071112
  Receipt Date: 20070216
  Transmission Date: 20080405
  Serious: No
  Sender: FDA-Public Use
  Company Number: A0633746A

PATIENT
  Age: 47 Year
  Sex: Male

DRUGS (3)
  1. AVANDAMET [Suspect]
     Indication: DRUG USE FOR UNKNOWN INDICATION
     Dosage: 2TAB TWICE PER DAY
     Route: 048
     Dates: end: 20070102
  2. SOAP [Suspect]
  3. NO CONCURRENT MEDICATION [Concomitant]

REACTIONS (1)
  - URTICARIA [None]
